FAERS Safety Report 14150596 (Version 1)
Quarter: 2017Q4

REPORT INFORMATION
  Report Type: Other
  Country: GB (occurrence: CN)
  Receive Date: 20171101
  Receipt Date: 20171101
  Transmission Date: 20180321
  Serious: Yes (Life-Threatening, Hospitalization, Other)
  Sender: FDA-Public Use
  Company Number: CN-INTERNATIONAL MEDICATION SYSTEMS, LIMITED-2033000

PATIENT
  Age: 40 Year
  Sex: Male

DRUGS (4)
  1. HEPARIN SODIUM. [Concomitant]
     Active Substance: HEPARIN SODIUM
     Route: 042
  2. EPINEPHRINE INJECTION [Suspect]
     Active Substance: EPINEPHRINE
     Route: 042
  3. ATROPINE. [Suspect]
     Active Substance: ATROPINE
  4. EPINEPHRINE. [Suspect]
     Active Substance: EPINEPHRINE

REACTIONS (2)
  - Drug ineffective [Unknown]
  - Renal impairment [Recovered/Resolved]
